FAERS Safety Report 22517333 (Version 1)
Quarter: 2023Q2

REPORT INFORMATION
  Report Type: Spontaneous
  Country: US (occurrence: US)
  Receive Date: 20230603
  Receipt Date: 20230603
  Transmission Date: 20230722
  Serious: Yes (Other)
  Sender: FDA-Public Use
  Company Number: US-USV-002005

PATIENT
  Age: 4 Year
  Sex: Female

DRUGS (1)
  1. ZOLEDRONIC ACID [Suspect]
     Active Substance: ZOLEDRONIC ACID
     Indication: Osteogenesis imperfecta
     Dosage: CUMULATIVE DOSE: 40 MG TOTAL
     Route: 042

REACTIONS (2)
  - Osteopetrosis [Unknown]
  - Product use issue [Unknown]
